FAERS Safety Report 9746311 (Version 1)
Quarter: 2013Q4

REPORT INFORMATION
  Report Type: Spontaneous
  Country: GB (occurrence: None)
  Receive Date: 20131205
  Receipt Date: 20131205
  Transmission Date: 20140711
  Serious: Yes (Other)
  Sender: FDA-Public Use
  Company Number: AUR-APL-2013-09891

PATIENT
  Age: 51 Year
  Sex: Male
  Weight: 89 kg

DRUGS (5)
  1. GABAPENTIN (GABAPENTIN) [Suspect]
     Indication: BACK PAIN
     Dosage: 1800 MG, (600 MG 3 IN 1 D)
     Route: 048
     Dates: start: 20120210
  2. AMITRIPTYLINE (AMITRIPTYLINE) [Concomitant]
  3. BUPRENORPHINE HYDROCHLORIDE (BUPRENORPHINE HYDROCHLORIDE) [Concomitant]
  4. IBUPROFEN (IBUPROFEN) [Concomitant]
  5. PARACETAMOL (PARACETAMOL) [Concomitant]

REACTIONS (1)
  - Visual field defect [None]
